FAERS Safety Report 20576908 (Version 1)
Quarter: 2022Q1

REPORT INFORMATION
  Report Type: Spontaneous
  Country: US (occurrence: US)
  Receive Date: 20220310
  Receipt Date: 20220310
  Transmission Date: 20220423
  Serious: Yes (Hospitalization, Other)
  Sender: FDA-Public Use
  Company Number: US-BIOVITRUM-2022US03248

PATIENT
  Sex: Female
  Weight: 10 kg

DRUGS (3)
  1. SYNAGIS [Suspect]
     Active Substance: PALIVIZUMAB
     Indication: Heart disease congenital
     Route: 030
     Dates: start: 202112
  2. SYNAGIS [Suspect]
     Active Substance: PALIVIZUMAB
     Indication: Heterotaxia
  3. SYNAGIS [Suspect]
     Active Substance: PALIVIZUMAB
     Indication: Asplenia

REACTIONS (1)
  - Cardiac failure [Unknown]
